FAERS Safety Report 7979596-9 (Version None)
Quarter: 2011Q4

REPORT INFORMATION
  Report Type: 
  Country: None (occurrence: None)
  Receive Date: 20111201
  Receipt Date: 20111116
  Transmission Date: 20120403
  Serious: Yes (Other)
  Sender: FDA-Public Use
  Company Number: 2011SP054442

PATIENT
  Sex: Male

DRUGS (2)
  1. DULERA ORAL INHALATION [Suspect]
     Indication: BRONCHITIS
     Dosage: INH
     Route: 055
     Dates: start: 20110901
  2. ALBUTEROL [Concomitant]

REACTIONS (1)
  - CONVULSION [None]
